FAERS Safety Report 18358861 (Version 2)
Quarter: 2020Q4

REPORT INFORMATION
  Report Type: Spontaneous
  Country: US (occurrence: US)
  Receive Date: 20201008
  Receipt Date: 20201230
  Transmission Date: 20210114
  Serious: No
  Sender: FDA-Public Use
  Company Number: US-SHIRE-US202032403

PATIENT
  Sex: Female
  Weight: 94.79 kg

DRUGS (19)
  1. GAMMAGARD S/D [Suspect]
     Active Substance: HUMAN IMMUNOGLOBULIN G
     Indication: IMMUNODEFICIENCY COMMON VARIABLE
     Dosage: 40 GRAM, Q4WEEKS
     Route: 042
     Dates: start: 20170107
  2. SODIUM CHLORIDE 0.9% [Concomitant]
     Active Substance: SODIUM CHLORIDE
     Indication: PRODUCT USED FOR UNKNOWN INDICATION
  3. DIPHENHYDRAMINE. [Concomitant]
     Active Substance: DIPHENHYDRAMINE
     Indication: PRODUCT USED FOR UNKNOWN INDICATION
  4. CLONAZEPAM. [Concomitant]
     Active Substance: CLONAZEPAM
     Indication: PRODUCT USED FOR UNKNOWN INDICATION
  5. ACETAMINOPHEN. [Concomitant]
     Active Substance: ACETAMINOPHEN
     Indication: PRODUCT USED FOR UNKNOWN INDICATION
  6. EPINEPHRINE. [Concomitant]
     Active Substance: EPINEPHRINE
     Indication: PRODUCT USED FOR UNKNOWN INDICATION
  7. LEVOTHYROXINE. [Concomitant]
     Active Substance: LEVOTHYROXINE
     Indication: PRODUCT USED FOR UNKNOWN INDICATION
  8. CALCIUM [Concomitant]
     Active Substance: CALCIUM
     Indication: PRODUCT USED FOR UNKNOWN INDICATION
  9. GAMMAGARD S/D [Suspect]
     Active Substance: HUMAN IMMUNOGLOBULIN G
     Indication: IMMUNODEFICIENCY COMMON VARIABLE
     Dosage: 40 GRAM, Q4WEEKS
     Route: 042
     Dates: start: 20170107
  10. DEXTROSE. [Concomitant]
     Active Substance: DEXTROSE
     Indication: PRODUCT USED FOR UNKNOWN INDICATION
  11. NALTREXONE [Concomitant]
     Active Substance: NALTREXONE
     Indication: PRODUCT USED FOR UNKNOWN INDICATION
  12. LIDOCAINE. [Concomitant]
     Active Substance: LIDOCAINE
     Indication: PRODUCT USED FOR UNKNOWN INDICATION
  13. PROPRANOLOL [Concomitant]
     Active Substance: PROPRANOLOL HYDROCHLORIDE
     Indication: PRODUCT USED FOR UNKNOWN INDICATION
  14. VITAMIN D3 [Concomitant]
     Active Substance: CHOLECALCIFEROL
     Indication: PRODUCT USED FOR UNKNOWN INDICATION
  15. GAMMAGARD S/D [Suspect]
     Active Substance: HUMAN IMMUNOGLOBULIN G
     Indication: SELECTIVE IGA IMMUNODEFICIENCY
     Dosage: 35 GRAM, Q4WEEKS
     Route: 042
     Dates: start: 20170107
  16. GAMMAGARD S/D [Suspect]
     Active Substance: HUMAN IMMUNOGLOBULIN G
     Indication: SELECTIVE IGA IMMUNODEFICIENCY
     Dosage: 35 GRAM, Q4WEEKS
     Route: 042
     Dates: start: 20170107
  17. DIOVAN [Concomitant]
     Active Substance: VALSARTAN
     Indication: PRODUCT USED FOR UNKNOWN INDICATION
  18. MAGNESIUM GLUCONATE [Concomitant]
     Active Substance: MAGNESIUM GLUCONATE
     Indication: PRODUCT USED FOR UNKNOWN INDICATION
  19. PRESERVISION AREDS 2 [Concomitant]
     Active Substance: MINERALS\VITAMINS
     Indication: PRODUCT USED FOR UNKNOWN INDICATION

REACTIONS (4)
  - Headache [Unknown]
  - Nausea [Unknown]
  - Pyrexia [Unknown]
  - Fatigue [Unknown]
